FAERS Safety Report 7653286-4 (Version None)
Quarter: 2011Q3

REPORT INFORMATION
  Report Type: 
  Country: None (occurrence: None)
  Receive Date: 20110803
  Receipt Date: 20110726
  Transmission Date: 20111222
  Serious: Yes (Death, Life-Threatening, Other)
  Sender: FDA-Public Use
  Company Number: JP-CELGENEUS-087-CCAZA-11071281

PATIENT
  Sex: Male

DRUGS (39)
  1. MEROPENEM [Concomitant]
     Dosage: 500 MILLILITER
     Route: 041
     Dates: start: 20110704, end: 20110705
  2. HUMULIN R [Concomitant]
     Dosage: 10 IU (INTERNATIONAL UNIT)
     Route: 041
     Dates: start: 20110706, end: 20110706
  3. RED BLOOD CELLS [Concomitant]
     Dosage: 2 UNITS
     Route: 041
     Dates: start: 20110614, end: 20110614
  4. MEROPENEM [Concomitant]
     Dosage: 1 GRAM
     Route: 041
     Dates: start: 20110705, end: 20110706
  5. MEROPENEM [Concomitant]
     Route: 041
     Dates: start: 20110614, end: 20110621
  6. GRAN [Concomitant]
     Dosage: 75 MICROGRAM
     Route: 041
     Dates: start: 20110705, end: 20110706
  7. FUNGUARD [Concomitant]
     Route: 041
     Dates: start: 20110614, end: 20110621
  8. RED BLOOD CELLS [Concomitant]
     Dosage: 2 UNITS
     Route: 041
     Dates: start: 20110621, end: 20110621
  9. ADALAT [Concomitant]
     Dosage: 200 MILLIGRAM
     Route: 048
  10. LOPERAMIDE HYDROCHLORIDE [Concomitant]
     Dosage: 1 MILLIGRAM
     Route: 048
     Dates: end: 20110530
  11. SOLITA T [Concomitant]
     Dosage: 1000 MILLILITER
     Route: 041
     Dates: start: 20110705, end: 20110706
  12. HUMULIN R [Concomitant]
     Dosage: 500 MILLILITER
     Route: 041
     Dates: start: 20110704, end: 20110705
  13. RED BLOOD CELLS [Concomitant]
     Dosage: 2 UNITS
     Route: 041
     Dates: start: 20110620, end: 20110620
  14. EPARA [Concomitant]
     Dosage: 600 MILLIGRAM
     Route: 048
  15. PANTOSIN [Concomitant]
     Dosage: 100 MILLIGRAM
     Route: 048
  16. KAKODIN-D [Concomitant]
     Route: 041
     Dates: start: 20110614, end: 20110621
  17. HUMULIN R [Concomitant]
     Route: 041
     Dates: start: 20110614, end: 20110621
  18. RED BLOOD CELLS [Concomitant]
     Dosage: 2 UNITS
     Route: 041
     Dates: start: 20110706, end: 20110706
  19. OXYGEN [Concomitant]
     Dosage: 6 LITERS
     Route: 055
     Dates: start: 20110706
  20. AZACITIDINE [Suspect]
     Dosage: 60 MILLIGRAM/SQ. METER
     Route: 041
     Dates: start: 20110613, end: 20110621
  21. ZOLPIDEM [Concomitant]
     Dosage: 10 MILLIGRAM
     Route: 048
  22. MAGNESIUM SULFATE [Concomitant]
     Dosage: 330 MILLIGRAM
     Route: 048
  23. TANNALBIN [Concomitant]
     Dosage: 3 GRAM
     Route: 048
     Dates: end: 20110530
  24. SOLITA T [Concomitant]
     Dosage: 500 MILLILITER
     Route: 041
     Dates: start: 20110704, end: 20110705
  25. GRAN [Concomitant]
     Route: 041
     Dates: start: 20110614, end: 20110621
  26. OXYGEN [Concomitant]
     Dosage: 4 LITERS
     Route: 055
     Dates: start: 20110705
  27. LYRICA [Concomitant]
     Dosage: 75 MILLIGRAM
     Route: 048
  28. KAKODIN-D [Concomitant]
     Dosage: 500 MILLILITER
     Route: 041
     Dates: start: 20110704, end: 20110705
  29. AZACITIDINE [Suspect]
     Indication: MYELODYSPLASTIC SYNDROME
     Dosage: 75 MILLIGRAM/SQ. METER
     Route: 041
     Dates: start: 20110411, end: 20110419
  30. CARNACULIN [Concomitant]
     Dosage: 150 MILLIGRAM
     Route: 048
  31. LYRICA [Concomitant]
     Dosage: 150 MILLIGRAM
     Route: 048
     Dates: end: 20110510
  32. GRAN [Concomitant]
     Dosage: 500 MILLILITER
     Route: 041
     Dates: start: 20110704, end: 20110705
  33. FUNGUARD [Concomitant]
     Dosage: 150 MILLIGRAM
     Route: 041
     Dates: start: 20110706, end: 20110706
  34. ELECTROLYTES [Concomitant]
     Route: 041
     Dates: start: 20110705
  35. AZACITIDINE [Suspect]
     Dosage: 37.5 MILLIGRAM/SQ. METER
     Route: 041
     Dates: start: 20110516, end: 20110524
  36. OLMESARTAN MEDOXOMIL [Concomitant]
     Dosage: 20 MILLIGRAM
     Route: 048
  37. SOLITA T [Concomitant]
     Route: 041
     Dates: start: 20110614, end: 20110621
  38. KAKODIN-D [Concomitant]
     Route: 041
     Dates: start: 20110706, end: 20110706
  39. FUNGUARD [Concomitant]
     Dosage: 500 MILLILITER
     Route: 041
     Dates: start: 20110704, end: 20110705

REACTIONS (13)
  - ASPARTATE AMINOTRANSFERASE INCREASED [None]
  - HAEMOGLOBIN DECREASED [None]
  - NEUTROPHIL COUNT DECREASED [None]
  - BLOOD SODIUM DECREASED [None]
  - DIARRHOEA [None]
  - PULMONARY HAEMORRHAGE [None]
  - ALANINE AMINOTRANSFERASE INCREASED [None]
  - BLOOD CREATININE INCREASED [None]
  - BLOOD UREA INCREASED [None]
  - RED BLOOD CELL COUNT DECREASED [None]
  - PLATELET COUNT DECREASED [None]
  - ERYTHROBLAST COUNT DECREASED [None]
  - WHITE BLOOD CELL COUNT DECREASED [None]
